FAERS Safety Report 5630545-8 (Version None)
Quarter: 2008Q1

REPORT INFORMATION
  Report Type: 
  Country: None (occurrence: None)
  Receive Date: 20080219
  Receipt Date: 20080207
  Transmission Date: 20080703
  Serious: Yes (Hospitalization)
  Sender: FDA-Public Use
  Company Number: US-AVENTIS-200811292GDDC

PATIENT
  Age: 47 Year
  Sex: Female

DRUGS (4)
  1. DDAVP [Suspect]
     Route: 058
  2. DDAVP [Suspect]
     Route: 030
  3. DDAVP [Suspect]
     Route: 045
  4. FLUTICASONE PROPIONATE [Concomitant]
     Indication: NASAL CONGESTION
     Route: 045

REACTIONS (2)
  - HYPONATRAEMIA [None]
  - WRONG DRUG ADMINISTERED [None]
